FAERS Safety Report 19471956 (Version 2)
Quarter: 2021Q3

REPORT INFORMATION
  Report Type: Spontaneous
  Country: US (occurrence: US)
  Receive Date: 20210629
  Receipt Date: 20210707
  Transmission Date: 20211014
  Serious: Yes (Hospitalization, Other)
  Sender: FDA-Public Use
  Company Number: US-AMGEN-USASP2021098270

PATIENT
  Age: 74 Year
  Sex: Female

DRUGS (2)
  1. CORLANOR [Suspect]
     Active Substance: IVABRADINE HYDROCHLORIDE
     Indication: TACHYCARDIA
     Dosage: 2.5 MILLIGRAM(HALF TABLET ) / IN THE MORNING AND AT SUPPER
     Route: 065
     Dates: start: 202103
  2. MIDODRINE [Concomitant]
     Active Substance: MIDODRINE
     Indication: TACHYCARDIA
     Dosage: 2.5 UNK / TAKEN TWICE DAILY TOGETHER WITH CORLANOR
     Route: 065
     Dates: start: 202103

REACTIONS (2)
  - Small cell lung cancer recurrent [Unknown]
  - Off label use [Unknown]

NARRATIVE: CASE EVENT DATE: 2021
